FAERS Safety Report 6911856-2 (Version None)
Quarter: 2010Q3

REPORT INFORMATION
  Report Type: 
  Country: None (occurrence: None)
  Receive Date: 20100806
  Receipt Date: 20070901
  Transmission Date: 20110219
  Serious: No
  Sender: FDA-Public Use
  Company Number: US-PFIZER INC-2007061044

PATIENT
  Age: 75 Year
  Sex: Male

DRUGS (4)
  1. DETROL LA [Suspect]
     Indication: HYPERTONIC BLADDER
  2. DETROL LA [Suspect]
     Indication: MICTURITION URGENCY
  3. TENIDAP SODIUM [Suspect]
     Indication: HYPERTONIC BLADDER
  4. TENIDAP SODIUM [Suspect]
     Indication: MICTURITION URGENCY

REACTIONS (2)
  - DRUG INEFFECTIVE [None]
  - DRUG INTOLERANCE [None]
